FAERS Safety Report 6704544-9 (Version None)
Quarter: 2010Q2

REPORT INFORMATION
  Report Type: 
  Country: None (occurrence: None)
  Receive Date: 20100430
  Receipt Date: 20100422
  Transmission Date: 20101027
  Serious: Yes (Hospitalization)
  Sender: FDA-Public Use
  Company Number: PHHO2010TR06268

PATIENT
  Weight: 73 kg

DRUGS (2)
  1. ACLASTA/ZOLEDRONATE T29581+A+SOLINJ+OS [Suspect]
     Indication: OSTEOPOROSIS POSTMENOPAUSAL
     Dosage: 5 MG
     Route: 042
     Dates: start: 20100421
  2. KARVEZIDE [Concomitant]

REACTIONS (5)
  - CHOLELITHIASIS [None]
  - GALLBLADDER OPERATION [None]
  - HYPOTENSION [None]
  - NAUSEA [None]
  - VOMITING [None]
